FAERS Safety Report 7179566-7 (Version None)
Quarter: 2010Q4

REPORT INFORMATION
  Report Type: 
  Country: None (occurrence: None)
  Receive Date: 20101221
  Receipt Date: 20101208
  Transmission Date: 20110411
  Serious: Yes (Hospitalization, Other)
  Sender: FDA-Public Use
  Company Number: PHHY2010US81894

PATIENT
  Sex: Female
  Weight: 67 kg

DRUGS (12)
  1. RECLAST [Suspect]
     Indication: OSTEOPOROSIS
     Dosage: YEARLY
     Route: 042
     Dates: start: 20101019
  2. RECLAST [Suspect]
     Dosage: UNK
     Dates: start: 20090601
  3. ORENCIA [Suspect]
     Dosage: UNK
     Dates: start: 20101105
  4. PREDNISONE [Concomitant]
     Dosage: 5MG
     Route: 048
  5. METHOTREXATE [Concomitant]
     Dosage: 12.5MG PER WEEK
     Route: 048
  6. HYDROCHLOROTHIAZIDE [Concomitant]
     Route: 048
  7. PEPCID [Concomitant]
  8. TOPROL-XL [Concomitant]
  9. NORVASC [Concomitant]
  10. ALLEGRA [Concomitant]
  11. CALCIUM [Concomitant]
     Dosage: UNK
  12. VITAMIN D [Concomitant]

REACTIONS (2)
  - FALL [None]
  - HIP FRACTURE [None]
